FAERS Safety Report 10463399 (Version 1)
Quarter: 2014Q3

REPORT INFORMATION
  Report Type: Spontaneous
  Country: US (occurrence: None)
  Receive Date: 20140918
  Receipt Date: 20140918
  Transmission Date: 20150326
  Serious: Yes (Hospitalization)
  Sender: FDA-Public Use
  Company Number: None

PATIENT
  Age: 65 Year
  Sex: Female
  Weight: 136 kg

DRUGS (16)
  1. PROPAFENONE. [Concomitant]
     Active Substance: PROPAFENONE
  2. KCL [Concomitant]
     Active Substance: POTASSIUM CHLORIDE
  3. INSULIN ASPART [Concomitant]
     Active Substance: INSULIN ASPART
  4. LANSOPRAZOLE. [Concomitant]
     Active Substance: LANSOPRAZOLE
  5. ATORVASTATIN [Concomitant]
     Active Substance: ATORVASTATIN
  6. GABAPENTIN. [Concomitant]
     Active Substance: GABAPENTIN
  7. OXYCODONE SR [Concomitant]
     Active Substance: OXYCODONE
  8. PSYLLIUM [Concomitant]
     Active Substance: PLANTAGO SEED
  9. MULTIVITAMIN [Concomitant]
     Active Substance: VITAMINS
  10. WARFARIN [Concomitant]
     Active Substance: WARFARIN
  11. CODEINE [Concomitant]
     Active Substance: CODEINE
  12. ENALAPRIL [Suspect]
     Active Substance: ENALAPRIL
     Indication: HYPERTENSION
     Dosage: UNKNOWN -PRIOR TO ADMISSION
     Route: 048
  13. FUROSEMIDE. [Concomitant]
     Active Substance: FUROSEMIDE
  14. INSULIN GLARGINE [Concomitant]
     Active Substance: INSULIN GLARGINE
  15. DESLORATADINE. [Concomitant]
     Active Substance: DESLORATADINE
  16. NIFEDIPINE. [Suspect]
     Active Substance: NIFEDIPINE
     Indication: HYPERTENSION
     Dosage: UNKNOWN-PRIOR TO ADMISSION
     Route: 048

REACTIONS (7)
  - Heart rate decreased [None]
  - Oedema [None]
  - Hypotension [None]
  - Atrial fibrillation [None]
  - Hypoglycaemia [None]
  - Syncope [None]
  - Renal failure acute [None]

NARRATIVE: CASE EVENT DATE: 20140504
